FAERS Safety Report 21485906 (Version 2)
Quarter: 2022Q4

REPORT INFORMATION
  Report Type: Spontaneous
  Country: US (occurrence: US)
  Receive Date: 20221020
  Receipt Date: 20221230
  Transmission Date: 20230113
  Serious: Yes (Hospitalization, Other)
  Sender: FDA-Public Use
  Company Number: US-VYERA PHARMACEUTICALS, LLC-2022VYE00021

PATIENT
  Age: 62 Year
  Sex: Female
  Weight: 81.814 kg

DRUGS (8)
  1. DARAPRIM [Suspect]
     Active Substance: PYRIMETHAMINE
     Indication: Cerebral toxoplasmosis
     Dosage: 50 MG, 1X/DAY
     Route: 048
     Dates: start: 20220909
  2. LEUCOVORIN [Concomitant]
     Active Substance: LEUCOVORIN
     Dosage: 25 MG, 1X/DAY
     Route: 048
     Dates: start: 20220909
  3. SULFADIAZINE [Concomitant]
     Active Substance: SULFADIAZINE
     Dosage: 1000 MG, 4X/DAY EVERY 6 HOURS
     Route: 048
     Dates: start: 20220909
  4. UNSPECIFIED INGREDIENT [Concomitant]
     Active Substance: UNSPECIFIED INGREDIENT
  5. MEMANTINE [Concomitant]
     Active Substance: MEMANTINE
     Dosage: 10 MG, 2X/DAY
     Route: 048
  6. VITAMINS [Concomitant]
     Active Substance: VITAMINS
     Dosage: UNK, 1X/DAY
  7. PANTOPRAZOLE [Concomitant]
     Active Substance: PANTOPRAZOLE
     Dosage: 40 MG, 1X/DAY
     Route: 048
  8. SERTRALINE [Concomitant]
     Active Substance: SERTRALINE HYDROCHLORIDE
     Dosage: 50 MG, 1X/DAY
     Route: 048

REACTIONS (25)
  - Feeling cold [Recovering/Resolving]
  - Discomfort [Recovering/Resolving]
  - Somnolence [Recovering/Resolving]
  - Hypophagia [Recovering/Resolving]
  - Unresponsive to stimuli [Unknown]
  - Encephalopathy [Unknown]
  - Acute kidney injury [Unknown]
  - Atrial fibrillation [Unknown]
  - Bradycardia [Unknown]
  - Intracranial pressure increased [Unknown]
  - Pancytopenia [Unknown]
  - Blood calcium abnormal [Unknown]
  - Fatigue [Unknown]
  - Performance status decreased [Unknown]
  - Peripheral coldness [Unknown]
  - Hyponatraemia [Unknown]
  - Atrioventricular block first degree [Unknown]
  - Asthenia [Unknown]
  - Dehydration [Unknown]
  - Blood creatinine increased [Unknown]
  - Blood urea increased [Unknown]
  - Hypernatraemia [Unknown]
  - Genital pain [Unknown]
  - Genital herpes [Unknown]
  - Body mass index increased [Unknown]

NARRATIVE: CASE EVENT DATE: 20220901
